FAERS Safety Report 9345241 (Version 3)
Quarter: 2013Q4

REPORT INFORMATION
  Report Type: Spontaneous
  Country: US (occurrence: US)
  Receive Date: 20130612
  Receipt Date: 20131030
  Transmission Date: 20140711
  Serious: Yes (Death)
  Sender: FDA-Public Use
  Company Number: US-BRISTOL-MYERS SQUIBB COMPANY-19001718

PATIENT
  Age: 72 Year
  Sex: Female

DRUGS (20)
  1. BYETTA [Suspect]
     Indication: TYPE 2 DIABETES MELLITUS
     Dates: start: 20090102, end: 20110208
  2. ZETIA [Concomitant]
     Dosage: TAB
     Route: 048
  3. TRICOR [Concomitant]
     Dosage: TAB
     Route: 048
  4. CELEBREX [Concomitant]
     Dosage: CAP, AS NEEDED
     Route: 048
  5. LISINOPRIL [Concomitant]
     Dosage: TAB
     Route: 048
  6. BACLOFEN [Concomitant]
     Dosage: 1 TAB Q AM P0 AND AT NOON AND 2 TABLETS BY MOUTH AT BEDTIME
     Route: 048
  7. FOLIC ACID [Concomitant]
     Dosage: TAB
     Route: 048
  8. GLIMEPIRIDE [Concomitant]
     Dosage: TAB
     Route: 048
  9. FUROSEMIDE [Concomitant]
     Dosage: TAB
     Route: 048
  10. DIGOXIN [Concomitant]
     Dosage: TAB
     Route: 048
  11. TOPIRAMATE [Concomitant]
     Dosage: TAB
     Route: 048
  12. CYMBALTA [Concomitant]
     Dosage: CAP
     Route: 048
  13. ASPIRIN [Concomitant]
     Dosage: TAB
     Route: 048
  14. MULTIVITAMINS [Concomitant]
     Route: 048
  15. VITAMIN B12 [Concomitant]
     Dosage: 1DF:1000 MCG/ML 1 ML EVERY IM MONTH
     Route: 030
  16. LEVOTHYROXINE SODIUM [Concomitant]
     Dosage: TAB
     Route: 048
  17. GAMMAGARD [Concomitant]
     Dosage: 10%
     Route: 042
  18. LYRICA [Concomitant]
     Dosage: CAP
     Route: 048
  19. VITAMIN D3 [Concomitant]
     Dosage: 1 DF= 400 UNIT, TAB
     Route: 048
  20. CEPHADYN [Concomitant]
     Dosage: TAB, 1 DF=50 MG TO 650 MG, TID AS NEEDED
     Route: 048

REACTIONS (1)
  - Pancreatic carcinoma [Fatal]
